FAERS Safety Report 10475675 (Version 3)
Quarter: 2014Q4

REPORT INFORMATION
  Report Type: Spontaneous
  Country: US (occurrence: US)
  Receive Date: 20140925
  Receipt Date: 20141030
  Transmission Date: 20150528
  Serious: Yes (Hospitalization, Other)
  Sender: FDA-Public Use
  Company Number: US-PFIZER INC-2014263906

PATIENT
  Age: 73 Year
  Sex: Male

DRUGS (12)
  1. PROCARDIA XL [Suspect]
     Active Substance: NIFEDIPINE
     Indication: BLOOD PRESSURE
     Dosage: 120 MG, DAILY (TAB 90MG IN THE MORNING, 1 TAB 30 MG AT NIGHT)
  2. ZANAFLEX [Concomitant]
     Active Substance: TIZANIDINE HYDROCHLORIDE
     Dosage: 4 MG, (1-3 TIMES A DAY)
     Dates: start: 20140922
  3. TENORMIN [Concomitant]
     Active Substance: ATENOLOL
     Dosage: 50 MG, DAILY
  4. COUMADIN [Concomitant]
     Active Substance: WARFARIN SODIUM
     Dosage: ^2 1/2 MG^
     Dates: start: 20140916
  5. PHENERGAN [Concomitant]
     Active Substance: PROMETHAZINE HYDROCHLORIDE
     Indication: NAUSEA
     Dosage: 25 MG, UNK
     Dates: start: 20141017
  6. ZOLOFT [Concomitant]
     Active Substance: SERTRALINE HYDROCHLORIDE
     Dosage: 50 MG, DAILY
  7. EZFE [Concomitant]
     Dosage: 1 DF, DAILY
  8. DICYCLOMINE [Concomitant]
     Active Substance: DICYCLOMINE HYDROCHLORIDE
     Dosage: 20 MG, 4X/DAY
  9. NORCO [Concomitant]
     Active Substance: ACETAMINOPHEN\HYDROCODONE BITARTRATE
     Dosage: UNK
     Dates: start: 20141009
  10. PROCARDIA XL [Suspect]
     Active Substance: NIFEDIPINE
     Indication: CARDIAC DISORDER
  11. ZOFRAN [Concomitant]
     Active Substance: ONDANSETRON HYDROCHLORIDE
     Indication: NAUSEA
     Dosage: 4 MG, UNK
  12. TAMSULOSIN [Concomitant]
     Active Substance: TAMSULOSIN
     Dosage: 0.4 MG, DAILY

REACTIONS (4)
  - Infection [Not Recovered/Not Resolved]
  - Paralysis [Not Recovered/Not Resolved]
  - Extradural abscess [Unknown]
  - Prostatic disorder [Recovered/Resolved]

NARRATIVE: CASE EVENT DATE: 201403
